FAERS Safety Report 4745814-3 (Version None)
Quarter: 2005Q3

REPORT INFORMATION
  Report Type: 
  Country: None (occurrence: None)
  Receive Date: 20050815
  Receipt Date: 20050815
  Transmission Date: 20060218
  Serious: Yes (Hospitalization)
  Sender: FDA-Public Use
  Company Number: None

PATIENT
  Age: 69 Year
  Sex: Female

DRUGS (9)
  1. PREDNISONE [Suspect]
     Indication: RHEUMATOID ARTHRITIS
     Dosage: 10MG   DAILY   ORAL
     Route: 048
     Dates: start: 20040101, end: 20050512
  2. ASPIRIN [Suspect]
     Indication: THROMBOSIS PROPHYLAXIS
     Dosage: 81MG  DAILY  ORAL
     Route: 048
     Dates: start: 20040101, end: 20050512
  3. METHOTREXATE [Concomitant]
  4. CLOPIDOGREL BISULFATE [Concomitant]
  5. ALENDRONATE [Concomitant]
  6. CALCIUM WITH D [Concomitant]
  7. BENICAR [Concomitant]
  8. WELLBUTRIN [Concomitant]
  9. TYLENOL W/ CODEINE [Concomitant]

REACTIONS (5)
  - INTESTINAL ISCHAEMIA [None]
  - LUNG NEOPLASM [None]
  - METASTASES TO LIVER [None]
  - PERIPHERAL VASCULAR DISORDER [None]
  - UPPER GASTROINTESTINAL HAEMORRHAGE [None]
